FAERS Safety Report 10566307 (Version 2)
Quarter: 2014Q4

REPORT INFORMATION
  Report Type: Report from Study
  Country: CZ (occurrence: CZ)
  Receive Date: 20141105
  Receipt Date: 20141205
  Transmission Date: 20150529
  Serious: Yes (Hospitalization)
  Sender: FDA-Public Use
  Company Number: CZ-GLAXOSMITHKLINE-CZ2014GSK014058

PATIENT
  Age: 39 Year
  Sex: Male
  Weight: 102 kg

DRUGS (6)
  1. CITALON [Concomitant]
     Indication: PROPHYLAXIS
     Dosage: 20 MG, QD
     Route: 048
     Dates: start: 20140811
  2. DABRAFENIB [Suspect]
     Active Substance: DABRAFENIB
     Indication: METASTATIC MALIGNANT MELANOMA
     Dosage: 150 MG, BID
     Dates: start: 20140807, end: 20141027
  3. FRONTIN [Concomitant]
     Active Substance: ALPRAZOLAM
     Indication: PROPHYLAXIS
     Dosage: 0.25 MG, TID
     Route: 048
     Dates: start: 20141104
  4. TRAMETINIB [Suspect]
     Active Substance: TRAMETINIB
     Indication: METASTATIC MALIGNANT MELANOMA
     Dosage: 2 MG, QD
     Dates: start: 20140807, end: 20141027
  5. NOVALGIN [Concomitant]
     Active Substance: METAMIZOLE SODIUM
     Indication: PAIN
     Dosage: 1000 MG, QD
     Route: 048
  6. LEXAURIN [Concomitant]
     Active Substance: BROMAZEPAM
     Indication: PROPHYLAXIS
     Dosage: 3 MG, PRN
     Route: 048
     Dates: start: 20140811

REACTIONS (2)
  - Abdominal pain [Not Recovered/Not Resolved]
  - Abdominal distension [Not Recovered/Not Resolved]

NARRATIVE: CASE EVENT DATE: 20141027
